FAERS Safety Report 8229102-9 (Version None)
Quarter: 2012Q1

REPORT INFORMATION
  Report Type: 
  Country: None (occurrence: None)
  Receive Date: 20120322
  Receipt Date: 20120321
  Transmission Date: 20120608
  Serious: Yes (Life-Threatening, Hospitalization, Other)
  Sender: FDA-Public Use
  Company Number: NL-JNJFOC-20111204083

PATIENT
  Age: 50 Year
  Sex: Female

DRUGS (9)
  1. DOCETAXEL [Suspect]
     Indication: CHEMOTHERAPY
     Route: 042
     Dates: start: 20110512
  2. DOXORUBICIN HCL [Suspect]
     Indication: CHEMOTHERAPY
     Route: 042
     Dates: start: 20110512
  3. PANTOPRAZOLE [Concomitant]
     Route: 065
  4. NEULASTA [Suspect]
     Indication: CHEMOTHERAPY
     Route: 058
     Dates: start: 20110513, end: 20110513
  5. APREPITANT [Concomitant]
     Route: 065
     Dates: start: 20110512, end: 20110515
  6. DOXORUBICIN HCL [Suspect]
     Indication: CHEMOTHERAPY
     Route: 042
     Dates: start: 20110512
  7. CYCLOPHOSPHAMIDE [Suspect]
     Indication: CHEMOTHERAPY
     Route: 042
     Dates: start: 20110512
  8. ONDANSETRON [Concomitant]
     Route: 065
  9. DEXAMETHASONE [Concomitant]
     Route: 065

REACTIONS (8)
  - CANDIDURIA [None]
  - PYREXIA [None]
  - CLOSTRIDIAL INFECTION [None]
  - MASTECTOMY [None]
  - LEUKOPENIA [None]
  - ABSCESS [None]
  - CLOSTRIDIUM BACTERAEMIA [None]
  - WOUND [None]
